FAERS Safety Report 9578005 (Version 1)
Quarter: 2013Q4

REPORT INFORMATION
  Report Type: Spontaneous
  Country: US (occurrence: US)
  Receive Date: 20131001
  Receipt Date: 20131001
  Transmission Date: 20140711
  Serious: Yes (Other)
  Sender: FDA-Public Use
  Company Number: US-AMGEN-USASP2013011147

PATIENT
  Age: 49 Year
  Sex: Male

DRUGS (5)
  1. ENBREL [Suspect]
     Indication: PSORIASIS
     Dosage: 50 MG, QWK
     Route: 058
  2. IBUPROFEN [Concomitant]
     Dosage: 200 MG, UNK
  3. OMEPRAZOLE [Concomitant]
     Dosage: 20 MG, UNK
  4. TRICOR                             /00090101/ [Concomitant]
     Dosage: 48 MG, UNK
  5. METOPROLOL [Concomitant]
     Dosage: 25 MG, UNK

REACTIONS (2)
  - Tuberculosis [Unknown]
  - Bacterial infection [Unknown]
